FAERS Safety Report 7193965-9 (Version None)
Quarter: 2010Q4

REPORT INFORMATION
  Report Type: 
  Country: None (occurrence: None)
  Receive Date: 20101223
  Receipt Date: 20101215
  Transmission Date: 20110411
  Serious: Yes (Hospitalization)
  Sender: FDA-Public Use
  Company Number: DE-TEVA-259945GER

PATIENT
  Age: 56 Year
  Sex: Male
  Weight: 79 kg

DRUGS (1)
  1. METRONIDAZOLE [Suspect]
     Indication: GIARDIASIS
     Route: 048
     Dates: start: 20080401

REACTIONS (1)
  - ACUTE MYOCARDIAL INFARCTION [None]
